FAERS Safety Report 5409309-6 (Version None)
Quarter: 2007Q3

REPORT INFORMATION
  Report Type: 
  Country: None (occurrence: None)
  Receive Date: 20070809
  Receipt Date: 20070702
  Transmission Date: 20080115
  Serious: Yes (Death, Life-Threatening, Hospitalization)
  Sender: FDA-Public Use
  Company Number: IN-NOVOPROD-264859

PATIENT
  Age: 37 Year
  Sex: Female
  Weight: 49 kg

DRUGS (3)
  1. NOVOLOG MIX 70/30 [Suspect]
     Indication: DIABETES MELLITUS
     Dosage: 20 IU, QD
     Route: 058
     Dates: start: 20070407
  2. GLIMEPIRIDE [Concomitant]
     Dosage: 9 MG, QD
     Route: 048
     Dates: start: 20020101
  3. METFORMIN HCL [Concomitant]
     Dosage: 1800 MG, QD
     Route: 048
     Dates: start: 20020101

REACTIONS (2)
  - DIABETIC COMA [None]
  - RENAL FAILURE ACUTE [None]
